FAERS Safety Report 15841911 (Version 1)
Quarter: 2019Q1

REPORT INFORMATION
  Report Type: Report from Study
  Country: BR (occurrence: BR)
  Receive Date: 20190118
  Receipt Date: 20190118
  Transmission Date: 20190417
  Serious: Yes (Other)
  Sender: FDA-Public Use
  Company Number: PHHY2019BR008640

PATIENT
  Sex: Male

DRUGS (2)
  1. EXELON PATCH [Suspect]
     Active Substance: RIVASTIGMINE
     Indication: PRODUCT USED FOR UNKNOWN INDICATION
     Dosage: UNK UNK, QD (STARTED BEFORE MORE THAN 10 YEARS)
     Route: 062
  2. HEIMER [Concomitant]
     Active Substance: MEMANTINE HYDROCHLORIDE
     Indication: PRODUCT USED FOR UNKNOWN INDICATION
     Dosage: FOR YEARS
     Route: 065

REACTIONS (5)
  - Dementia Alzheimer^s type [Unknown]
  - Diabetes mellitus [Unknown]
  - Parkinson^s disease [Unknown]
  - Gait disturbance [Recovering/Resolving]
  - Renal disorder [Unknown]
